FAERS Safety Report 5211720-3 (Version None)
Quarter: 2007Q1

REPORT INFORMATION
  Report Type: 
  Country: None (occurrence: None)
  Receive Date: 20070118
  Receipt Date: 20070108
  Transmission Date: 20070707
  Serious: Yes (Other)
  Sender: FDA-Public Use
  Company Number: PHNR2006AU01685

PATIENT
  Sex: Female

DRUGS (4)
  1. FEMARA [Suspect]
     Indication: BREAST CANCER
     Dosage: 2.5 MG, QD
     Route: 048
     Dates: start: 20060301
  2. OMEGA 3 [Concomitant]
  3. TEMAZEPAM [Concomitant]
     Dosage: 10 MG DAILY
     Dates: start: 20001101
  4. CIPRAMIL [Concomitant]
     Dosage: 20 MG DAILY
     Dates: start: 20001101

REACTIONS (4)
  - BLOOD IRON INCREASED [None]
  - CATARACT [None]
  - DRY EYE [None]
  - VISION BLURRED [None]
